FAERS Safety Report 25409478 (Version 1)
Quarter: 2025Q2

REPORT INFORMATION
  Report Type: Report from Study
  Country: IN (occurrence: IN)
  Receive Date: 20250607
  Receipt Date: 20250607
  Transmission Date: 20250716
  Serious: Yes (Death, Other)
  Sender: INSUD PHARMA
  Company Number: IN-INSUD PHARMA-2505IN04222

PATIENT

DRUGS (1)
  1. MEDROXYPROGESTERONE ACETATE [Suspect]
     Active Substance: MEDROXYPROGESTERONE ACETATE
     Indication: Endometrial cancer metastatic
     Route: 048

REACTIONS (1)
  - Acute on chronic liver failure [Fatal]
